FAERS Safety Report 7655248-X (Version None)
Quarter: 2011Q3

REPORT INFORMATION
  Report Type: 
  Country: None (occurrence: None)
  Receive Date: 20110729
  Receipt Date: 20110719
  Transmission Date: 20111222
  Serious: Yes (Other)
  Sender: FDA-Public Use
  Company Number: 2010SP044289

PATIENT
  Age: 34 Year
  Sex: Female
  Weight: 68.0396 kg

DRUGS (1)
  1. IMPLANON [Suspect]
     Indication: HAEMORRHAGE
     Dosage: 1 DF,
     Dates: start: 20040824

REACTIONS (1)
  - INCORRECT DRUG ADMINISTRATION DURATION [None]
